FAERS Safety Report 10028743 (Version 1)
Quarter: 2014Q1

REPORT INFORMATION
  Report Type: Spontaneous
  Country: AU (occurrence: AU)
  Receive Date: 20140321
  Receipt Date: 20140321
  Transmission Date: 20141002
  Serious: Yes (Hospitalization)
  Sender: FDA-Public Use
  Company Number: AU-BAYER-2014-039654

PATIENT
  Age: 56 Year
  Sex: Male

DRUGS (7)
  1. ACETYLSALICYLIC ACID (} 100 MG) [Suspect]
     Indication: ANTICOAGULANT THERAPY
     Dosage: DAILY DOSE 100 MG
  2. TICAGRELOR [Interacting]
     Indication: ANTICOAGULANT THERAPY
     Dosage: 90 MG, BID
  3. DILTIAZEM [Concomitant]
  4. ROSUVASTATIN [Concomitant]
  5. FLUTICASONE [Concomitant]
  6. SALMETEROL [Concomitant]
     Route: 045
  7. CLOPIDOGREL [Concomitant]
     Indication: ANTICOAGULANT THERAPY

REACTIONS (4)
  - Pneumonitis [Recovered/Resolved]
  - Pulmonary haemorrhage [Recovered/Resolved]
  - Haemoptysis [Recovered/Resolved]
  - Labelled drug-drug interaction medication error [None]
